FAERS Safety Report 10797233 (Version 1)
Quarter: 2015Q1

REPORT INFORMATION
  Report Type: Spontaneous
  Country: US (occurrence: US)
  Receive Date: 20150216
  Receipt Date: 20150216
  Transmission Date: 20150721
  Serious: No
  Sender: FDA-Public Use
  Company Number: US-009507513-1502USA004245

PATIENT
  Sex: Male

DRUGS (4)
  1. SINEMET [Suspect]
     Active Substance: CARBIDOPA\LEVODOPA
     Indication: PARKINSON^S DISEASE
     Dosage: UNK
     Dates: start: 20141219
  2. MYRBETRIQ [Suspect]
     Active Substance: MIRABEGRON
     Indication: URINARY RETENTION
     Dosage: UNK
  3. ZOSTAVAX [Suspect]
     Active Substance: VARICELLA-ZOSTER VIRUS STRAIN OKA/MERCK LIVE ANTIGEN
     Indication: PROPHYLAXIS
     Dates: start: 20141219, end: 20141219
  4. PRAMIPEXOLE [Suspect]
     Active Substance: PRAMIPEXOLE
     Dosage: UNK

REACTIONS (10)
  - Feeling drunk [Not Recovered/Not Resolved]
  - Blister [Not Recovered/Not Resolved]
  - Gait disturbance [Recovered/Resolved]
  - Blister [Recovered/Resolved]
  - Parkinson^s disease [Not Recovered/Not Resolved]
  - Feeling drunk [Recovered/Resolved]
  - Gait disturbance [Not Recovered/Not Resolved]
  - Dysarthria [Recovered/Resolved]
  - Urinary retention [Not Recovered/Not Resolved]
  - Dysarthria [Not Recovered/Not Resolved]
